FAERS Safety Report 12142980 (Version 1)
Quarter: 2016Q1

REPORT INFORMATION
  Report Type: Spontaneous
  Country: KR (occurrence: KR)
  Receive Date: 20160303
  Receipt Date: 20160303
  Transmission Date: 20160526
  Serious: Yes (Hospitalization)
  Sender: FDA-Public Use
  Company Number: KR-AMGEN-KORCT2016026489

PATIENT
  Age: 34 Year
  Sex: Female
  Weight: 53 kg

DRUGS (26)
  1. G-LASTA [Suspect]
     Active Substance: PEGFILGRASTIM
     Dosage: 6 MG, 1X/3WEEKS
     Route: 058
     Dates: start: 20151117, end: 20151117
  2. DOCETAXEL. [Concomitant]
     Active Substance: DOCETAXEL
     Dosage: 115 MG, UNK
     Route: 042
     Dates: start: 20150914, end: 20150914
  3. DOCETAXEL. [Concomitant]
     Active Substance: DOCETAXEL
     Dosage: 93.5 MG, UNK
     Route: 042
     Dates: start: 20151005, end: 20151005
  4. CYCLOPHOSPHAMIDE. [Concomitant]
     Active Substance: CYCLOPHOSPHAMIDE
     Dosage: 750 MG, UNK
     Route: 042
     Dates: start: 20151005, end: 20151005
  5. DEXAMETHASONE. [Concomitant]
     Active Substance: DEXAMETHASONE
     Dosage: 1.5 MG, UNK
     Route: 048
     Dates: start: 20150914, end: 20150916
  6. STILLEN                            /07152401/ [Concomitant]
     Dosage: 180 MG, UNK
     Route: 048
     Dates: start: 20150914
  7. CIPROFLOXACIN. [Concomitant]
     Active Substance: CIPROFLOXACIN
     Dosage: 800 MG, UNK
     Route: 042
     Dates: start: 20150920, end: 20150923
  8. TYLENOL ER [Concomitant]
     Active Substance: ACETAMINOPHEN
     Dosage: 3TAB, UNK
     Route: 048
     Dates: start: 20150920, end: 20150921
  9. G-LASTA [Suspect]
     Active Substance: PEGFILGRASTIM
     Indication: FEBRILE NEUTROPENIA
     Dosage: 6 MG, 1X/3WEEKS
     Route: 058
     Dates: start: 20150915, end: 20150915
  10. G-LASTA [Suspect]
     Active Substance: PEGFILGRASTIM
     Dosage: 6 MG, 1X/3WEEKS
     Route: 058
     Dates: start: 20151027, end: 20151027
  11. DOXORUBICIN [Concomitant]
     Active Substance: DOXORUBICIN
     Dosage: 75 MG, UNK
     Route: 042
     Dates: start: 20151026, end: 20151026
  12. ENTELON [Concomitant]
     Dosage: 300 MG, UNK
     Route: 048
     Dates: start: 20151026
  13. DOCETAXEL. [Concomitant]
     Active Substance: DOCETAXEL
     Dosage: 93.5 MG, UNK
     Route: 042
     Dates: start: 20151116, end: 20151116
  14. DOXORUBICIN [Concomitant]
     Active Substance: DOXORUBICIN
     Dosage: 75 MG, UNK
     Route: 042
     Dates: start: 20150914, end: 20150914
  15. DOCETAXEL. [Concomitant]
     Active Substance: DOCETAXEL
     Dosage: 93.5 MG, UNK
     Route: 042
     Dates: start: 20151026, end: 20151026
  16. METOCLOPRAMIDE. [Concomitant]
     Active Substance: METOCLOPRAMIDE
     Dosage: 15 MG, UNK
     Route: 048
     Dates: start: 20150914
  17. PHAZYME                            /06269601/ [Concomitant]
     Dosage: 3TAB
     Route: 048
     Dates: start: 20150914
  18. CIPROFLOXACIN. [Concomitant]
     Active Substance: CIPROFLOXACIN
     Dosage: 500 MG, UNK
     Dates: start: 20151120, end: 20151129
  19. G-LASTA [Suspect]
     Active Substance: PEGFILGRASTIM
     Dosage: 6 MG, 1X/3WEEKS
     Route: 058
     Dates: start: 20151006, end: 20151006
  20. DOXORUBICIN [Concomitant]
     Active Substance: DOXORUBICIN
     Dosage: 75 MG, UNK
     Route: 042
     Dates: start: 20151005, end: 20151005
  21. CYCLOPHOSPHAMIDE. [Concomitant]
     Active Substance: CYCLOPHOSPHAMIDE
     Dosage: 750 MG, UNK
     Route: 042
     Dates: start: 20151026, end: 20151026
  22. LORAZEPAM. [Concomitant]
     Active Substance: LORAZEPAM
     Dosage: 1.5 MG, UNK
     Route: 048
     Dates: start: 20150914
  23. DOXORUBICIN [Concomitant]
     Active Substance: DOXORUBICIN
     Dosage: 75 MG, UNK
     Route: 042
     Dates: start: 20151116, end: 20151116
  24. CYCLOPHOSPHAMIDE. [Concomitant]
     Active Substance: CYCLOPHOSPHAMIDE
     Dosage: 750 MG, UNK
     Route: 042
     Dates: start: 20150914, end: 20150914
  25. CYCLOPHOSPHAMIDE. [Concomitant]
     Active Substance: CYCLOPHOSPHAMIDE
     Dosage: 750 MG, UNK
     Route: 042
     Dates: start: 20151116, end: 20151116
  26. CIPROFLOXACIN. [Concomitant]
     Active Substance: CIPROFLOXACIN
     Dosage: 500 MG, UNK
     Dates: start: 20151012, end: 20151015

REACTIONS (2)
  - Neutropenia [Recovered/Resolved]
  - Neutropenia [Recovered/Resolved]

NARRATIVE: CASE EVENT DATE: 20150920
